FAERS Safety Report 5711682-6 (Version None)
Quarter: 2008Q2

REPORT INFORMATION
  Report Type: 
  Country: None (occurrence: None)
  Receive Date: 20080421
  Receipt Date: 20080410
  Transmission Date: 20081010
  Serious: Yes (Hospitalization)
  Sender: FDA-Public Use
  Company Number: CH-WYE-H03669708

PATIENT
  Age: 65 Year
  Sex: Male

DRUGS (8)
  1. CORDARONE [Suspect]
     Indication: ATRIAL FIBRILLATION
     Route: 048
     Dates: start: 20080203, end: 20080217
  2. CORDARONE [Suspect]
     Indication: ATRIAL FLUTTER
  3. PRADIF [Concomitant]
     Dosage: DOSE UNKNOWN
     Route: 048
  4. SINVACOR [Concomitant]
     Route: 048
  5. PAROXETINE HCL [Concomitant]
     Route: 048
  6. MARCUMAR [Concomitant]
     Indication: ATRIAL FIBRILLATION
     Dosage: DOSE UNKNOWN
     Route: 048
  7. MARCUMAR [Concomitant]
     Indication: ATRIAL FLUTTER
  8. METFOREM [Concomitant]
     Indication: DIABETES MELLITUS
     Route: 048

REACTIONS (4)
  - CEREBELLAR SYNDROME [None]
  - CONFUSIONAL STATE [None]
  - EXTRAPYRAMIDAL DISORDER [None]
  - NIGHTMARE [None]
